FAERS Safety Report 5262101-8 (Version None)
Quarter: 2007Q1

REPORT INFORMATION
  Report Type: 
  Country: None (occurrence: None)
  Receive Date: 20070311
  Receipt Date: 20070228
  Transmission Date: 20070707
  Serious: Yes (Other)
  Sender: FDA-Public Use
  Company Number: 2006UW23491

PATIENT
  Sex: Female
  Weight: 90.9 kg

DRUGS (12)
  1. SEROQUEL [Suspect]
     Indication: MENTAL DISORDER
     Dosage: 50 TO 100 MG
     Route: 048
     Dates: start: 20050101
  2. ABILIFY [Concomitant]
  3. CLOZARIL [Concomitant]
  4. GEODON [Concomitant]
  5. HALDOL [Concomitant]
  6. NAVANE [Concomitant]
  7. RISPERDAL [Concomitant]
  8. STELAZINE [Concomitant]
  9. THORAZINE [Concomitant]
  10. ZYPREXA [Concomitant]
  11. MARIJUANA [Concomitant]
  12. METH [Concomitant]

REACTIONS (5)
  - DEPRESSION [None]
  - DIABETES MELLITUS [None]
  - MENTAL DISORDER [None]
  - PANCREATITIS [None]
  - POST-TRAUMATIC STRESS DISORDER [None]
